FAERS Safety Report 18787499 (Version 2)
Quarter: 2021Q1

REPORT INFORMATION
  Report Type: Not Available
  Country: GB (occurrence: GB)
  Receive Date: 20210126
  Receipt Date: 20210204
  Transmission Date: 20210419
  Serious: Yes (Other)
  Sender: FDA-Public Use
  Company Number: GB-SYNTHON BV-IN51PV21_57109

PATIENT
  Sex: Male

DRUGS (2)
  1. NITROFURANTOIN. [Interacting]
     Active Substance: NITROFURANTOIN
     Indication: URINARY TRACT INFECTION
     Dosage: UNK
     Route: 065
  2. TAMSULOSIN [Suspect]
     Active Substance: TAMSULOSIN
     Indication: PROSTATIC DISORDER
     Dosage: UNK

REACTIONS (3)
  - Drug interaction [Unknown]
  - Fatigue [Recovered/Resolved]
  - Myalgia [Recovered/Resolved]
